FAERS Safety Report 8995043 (Version 1)
Quarter: 2012Q4

REPORT INFORMATION
  Report Type: Spontaneous
  Country: US (occurrence: None)
  Receive Date: 20121228
  Receipt Date: 20121228
  Transmission Date: 20130627
  Serious: Yes (Hospitalization)
  Sender: FDA-Public Use
  Company Number: None

PATIENT
  Sex: Male
  Weight: 95.7 kg

DRUGS (2)
  1. CISPLATIN [Suspect]
     Dates: end: 20121211
  2. VINORELBINE TARTRATE [Suspect]
     Dates: end: 20121218

REACTIONS (3)
  - Neutrophil count decreased [None]
  - Body temperature increased [None]
  - Productive cough [None]
